FAERS Safety Report 9478486 (Version 1)
Quarter: 2013Q3

REPORT INFORMATION
  Report Type: Spontaneous
  Country: US (occurrence: None)
  Receive Date: 20130822
  Receipt Date: 20130822
  Transmission Date: 20140515
  Serious: Yes (Death)
  Sender: FDA-Public Use
  Company Number: 1713747-2013-99935

PATIENT
  Age: 82 Year
  Sex: Male
  Weight: 61.5 kg

DRUGS (3)
  1. SODIUM CHLORIDE 0.9% [Suspect]
  2. LIBERTY CYCLER [Concomitant]
  3. LIBERTY CYCLER TUBING [Concomitant]

REACTIONS (1)
  - Death [None]
